FAERS Safety Report 7351270-1 (Version None)
Quarter: 2011Q1

REPORT INFORMATION
  Report Type: 
  Country: None (occurrence: None)
  Receive Date: 20110314
  Receipt Date: 20110221
  Transmission Date: 20110831
  Serious: Yes (Hospitalization)
  Sender: FDA-Public Use
  Company Number: JP-BAYER-2011-018125

PATIENT
  Sex: Male

DRUGS (5)
  1. PANALDINE [Suspect]
     Route: 048
  2. BRIVANIB ALANINATE OR PLACEBO [Suspect]
  3. UNCODEABLE ^INVESTIGATIONAL DRUG^ [Suspect]
     Dosage: 800 MG, QD
     Route: 048
     Dates: start: 20110205
  4. UNCODEABLE ^INVESTIGATIONAL DRUG^ [Suspect]
     Indication: HEPATIC NEOPLASM MALIGNANT
     Dosage: 800 MG, QD
     Route: 048
     Dates: start: 20101102, end: 20110116
  5. UNCODEABLE ^INVESTIGATIONAL DRUG^ [Suspect]
     Dosage: UNK

REACTIONS (2)
  - GASTROINTESTINAL HAEMORRHAGE [None]
  - ANAEMIA [None]
